FAERS Safety Report 12221130 (Version 1)
Quarter: 2016Q1

REPORT INFORMATION
  Report Type: Spontaneous
  Country: US (occurrence: US)
  Receive Date: 20160330
  Receipt Date: 20160330
  Transmission Date: 20160526
  Serious: No
  Sender: FDA-Public Use
  Company Number: US-SA-2016SA019734

PATIENT
  Age: 6 Year
  Sex: Male

DRUGS (1)
  1. CHILDREN^S ALLERGY, ORALLY DISINTEGRATING TABLETS [Suspect]
     Active Substance: FEXOFENADINE HYDROCHLORIDE
     Indication: MULTIPLE ALLERGIES
     Route: 048

REACTIONS (1)
  - Product taste abnormal [Unknown]
